FAERS Safety Report 9186887 (Version 1)
Quarter: 2013Q1

REPORT INFORMATION
  Report Type: Spontaneous
  Country: CA (occurrence: CA)
  Receive Date: 20130325
  Receipt Date: 20130325
  Transmission Date: 20140127
  Serious: Yes (Life-Threatening, Hospitalization)
  Sender: FDA-Public Use
  Company Number: CA-GLAXOSMITHKLINE-A0999237A

PATIENT
  Age: 77 Year
  Sex: Female
  Weight: 53.2 kg

DRUGS (13)
  1. AVANDIA [Suspect]
     Indication: PRODUCT USED FOR UNKNOWN INDICATION
     Dosage: 4MG PER DAY
     Route: 048
  2. ADVAIR [Concomitant]
  3. AGGRENOX [Concomitant]
  4. CALCIUM CARBONATE [Concomitant]
  5. COSOPT [Concomitant]
  6. METFORMIN [Concomitant]
  7. METOCLOPRAMIDE [Concomitant]
  8. SIMVASTATIN [Concomitant]
  9. SPIRIVA [Concomitant]
  10. TRAMADOL HYDROCHLORIDE [Concomitant]
  11. TRAVATAN [Concomitant]
  12. TYLENOL ARTHRITIS PAIN [Concomitant]
  13. VITAMIN D [Concomitant]

REACTIONS (1)
  - Myocardial infarction [Unknown]
